FAERS Safety Report 7776284 (Version 7)
Quarter: 2013Q2

REPORT INFORMATION
  Report Type: Spontaneous
  Country: US (occurrence: US)
  Receive Date: 20110127
  Receipt Date: 20130621
  Transmission Date: 20140414
  Serious: Yes (Hospitalization, Other)
  Sender: FDA-Public Use
  Company Number: US-ROCHE-751665

PATIENT
  Age: 48 Year
  Sex: Female
  Weight: 104.42 kg

DRUGS (1)
  1. ACCUTANE [Suspect]
     Indication: ACNE
     Route: 065
     Dates: start: 199512, end: 199604

REACTIONS (14)
  - Diverticulitis [Unknown]
  - Colitis ulcerative [Unknown]
  - Diverticulum [Unknown]
  - Anal abscess [Unknown]
  - Anal fistula [Unknown]
  - Inflammatory bowel disease [Unknown]
  - Depression [Unknown]
  - Intestinal obstruction [Unknown]
  - Large intestine polyp [Unknown]
  - Anal polyp [Unknown]
  - Intussusception [Unknown]
  - Myalgia [Unknown]
  - Urticaria [Unknown]
  - Pruritus [Unknown]
